FAERS Safety Report 10029318 (Version 1)
Quarter: 2014Q1

REPORT INFORMATION
  Report Type: Report from Study
  Country: US (occurrence: US)
  Receive Date: 20140321
  Receipt Date: 20140321
  Transmission Date: 20141002
  Serious: No
  Sender: FDA-Public Use
  Company Number: PHEH2014US005621

PATIENT
  Age: 59 Year
  Sex: Male

DRUGS (9)
  1. TASIGNA [Suspect]
     Indication: CHRONIC MYELOID LEUKAEMIA
     Dosage: 400 MG, BID
     Route: 048
     Dates: start: 20131114
  2. CENTRUM [Concomitant]
     Dosage: UNK UKN, UNK
  3. COUMADINE [Concomitant]
     Dosage: UNK UKN, UNK
  4. SPIRONOLACTONE [Concomitant]
     Dosage: UNK UKN, UNK
  5. CITRACAL + D [Concomitant]
     Dosage: UNK UKN, UNK
  6. EUFLEXXA [Concomitant]
     Dosage: UNK UKN, UNK
  7. SINGULAIR [Concomitant]
     Dosage: UNK UKN, UNK
  8. LISINOPRIL [Concomitant]
     Dosage: UNK UKN, UNK
  9. FLUOXETINE [Concomitant]
     Dosage: UNK UKN, UNK

REACTIONS (2)
  - Fatigue [Unknown]
  - Nausea [Unknown]
